APPROVED DRUG PRODUCT: INGENOL MEBUTATE
Active Ingredient: INGENOL MEBUTATE
Strength: 0.015%
Dosage Form/Route: GEL;TOPICAL
Application: A209018 | Product #001
Applicant: PADAGIS ISRAEL PHARMACEUTICALS LTD
Approved: Jan 7, 2019 | RLD: No | RS: No | Type: DISCN